FAERS Safety Report 13049335 (Version 1)
Quarter: 2016Q4

REPORT INFORMATION
  Report Type: Spontaneous
  Country: CN (occurrence: CN)
  Receive Date: 20161221
  Receipt Date: 20161221
  Transmission Date: 20170207
  Serious: Yes (Other)
  Sender: FDA-Public Use
  Company Number: CN-BAYER-2016-237981

PATIENT
  Age: 42 Year
  Sex: Female
  Weight: 60 kg

DRUGS (4)
  1. AVELOX [Suspect]
     Active Substance: MOXIFLOXACIN HYDROCHLORIDE
     Indication: PELVIC INFECTION
     Dosage: 0.4 G, QD
     Route: 048
     Dates: start: 20161011, end: 20161014
  2. CHLORHEXIDINE DIACETATE [Suspect]
     Active Substance: CHLORHEXIDINE DIACETATE
     Indication: PELVIC INFECTION
     Dosage: 1 DF, QD
     Route: 061
     Dates: start: 20161011, end: 20161014
  3. METRONIDAZOLE. [Suspect]
     Active Substance: METRONIDAZOLE
     Indication: PELVIC INFECTION
     Dosage: 1 DF, QD
     Route: 067
     Dates: start: 20161011, end: 20161014
  4. CLOTRIMAZOLE. [Suspect]
     Active Substance: CLOTRIMAZOLE
     Indication: PELVIC INFECTION
     Dosage: 1 DF, QD
     Route: 061
     Dates: start: 20161011, end: 20161014

REACTIONS (3)
  - Burning sensation [Recovering/Resolving]
  - Haemorrhage [Recovering/Resolving]
  - Unevaluable event [Recovering/Resolving]

NARRATIVE: CASE EVENT DATE: 20161014
